FAERS Safety Report 17781720 (Version 1)
Quarter: 2020Q2

REPORT INFORMATION
  Report Type: Spontaneous
  Country: FR (occurrence: FR)
  Receive Date: 20200514
  Receipt Date: 20200514
  Transmission Date: 20200714
  Serious: Yes (Other)
  Sender: FDA-Public Use
  Company Number: NVSC2020FR128534

PATIENT
  Age: 67 Year
  Sex: Female
  Weight: 45 kg

DRUGS (7)
  1. METOCLOPRAMIDE. [Suspect]
     Active Substance: METOCLOPRAMIDE
     Indication: VOMITING
     Route: 065
     Dates: start: 202002
  2. DEXCHLORPHENIRAMINE [Suspect]
     Active Substance: DEXCHLORPHENIRAMINE
     Indication: NEUROENDOCRINE TUMOUR
     Route: 065
     Dates: start: 201702
  3. PRIMENE [Suspect]
     Active Substance: ALANINE\ARGININE\ASPARTIC ACID\CYSTEINE\GLUTAMIC ACID\GLYCINE\HISTIDINE\ISOLEUCINE\LEUCINE\LYSINE\METHIONINE\ORNITHINE HYDROCHLORIDE\PHENYLALANINE\PROLINE\SERINE\TAURINE\THREONINE\TRYPTOPHAN\TYROSINE\VALINE
     Indication: NEUROENDOCRINE TUMOUR
     Dosage: 350 ML/H IN 6H
     Route: 065
     Dates: start: 201702
  4. ONDANSETRON [Suspect]
     Active Substance: ONDANSETRON
     Indication: NEUROENDOCRINE TUMOUR
     Route: 065
     Dates: start: 201702
  5. METHYLPREDNISOLONE. [Suspect]
     Active Substance: METHYLPREDNISOLONE
     Indication: NEUROENDOCRINE TUMOUR
     Dosage: 40 MG IN 30 MINUTES
     Route: 065
     Dates: start: 201702
  6. LANREOTIDE [Suspect]
     Active Substance: LANREOTIDE
     Indication: NEUROENDOCRINE TUMOUR
     Dosage: 120 MG
     Route: 065
     Dates: start: 201702
  7. DOTATATE [Suspect]
     Active Substance: OXODOTREOTIDE
     Indication: NEUROENDOCRINE TUMOUR
     Dosage: 7.255 GIGABECQUEREL
     Route: 065
     Dates: start: 201702

REACTIONS (4)
  - Aminoaciduria [Recovered/Resolved]
  - Proteinuria [Recovered/Resolved]
  - Muscle spasms [Recovered/Resolved]
  - Metabolic acidosis [Recovered/Resolved]

NARRATIVE: CASE EVENT DATE: 201702
